FAERS Safety Report 7958751-8 (Version None)
Quarter: 2011Q4

REPORT INFORMATION
  Report Type: 
  Country: None (occurrence: None)
  Receive Date: 20111206
  Receipt Date: 20111124
  Transmission Date: 20120403
  Serious: Yes (Other)
  Sender: FDA-Public Use
  Company Number: FR-JNJFOC-20110602933

PATIENT
  Sex: Female

DRUGS (3)
  1. STELARA [Suspect]
     Indication: PSORIASIS
     Dosage: MONTHLY
     Route: 058
     Dates: start: 20110415, end: 20110615
  2. PRAZEPAM [Concomitant]
     Indication: ANXIETY
     Route: 065
  3. RIFAMPIN AND ISONIAZID [Concomitant]
     Indication: TUBERCULOSIS
     Route: 048
     Dates: start: 20110307, end: 20110607

REACTIONS (3)
  - BIPOLAR I DISORDER [None]
  - PRURITUS GENERALISED [None]
  - PSYCHOTIC DISORDER [None]
